FAERS Safety Report 9335500 (Version 7)
Quarter: 2014Q1

REPORT INFORMATION
  Report Type: Spontaneous
  Country: US (occurrence: US)
  Receive Date: 20130605
  Receipt Date: 20140225
  Transmission Date: 20141002
  Serious: Yes (Hospitalization, Other)
  Sender: FDA-Public Use
  Company Number: US-009507513-1305USA017806

PATIENT
  Sex: Female
  Weight: 78.91 kg

DRUGS (13)
  1. FOSAMAX [Suspect]
     Indication: OSTEOPENIA
     Dosage: 35 MG, QW
     Route: 048
     Dates: start: 200307, end: 2005
  2. FOSAMAX [Suspect]
     Dosage: 70 MG, QW
     Route: 048
     Dates: start: 2005, end: 2008
  3. ALENDRONATE SODIUM [Suspect]
     Indication: OSTEOPENIA
     Dosage: 70 MG, QW
     Route: 048
     Dates: start: 2008, end: 201203
  4. FLUTICASONE PROPIONATE [Concomitant]
     Indication: HYPERSENSITIVITY
     Dosage: UNK
     Dates: start: 2009, end: 2010
  5. FLUTICASONE PROPIONATE [Concomitant]
     Indication: ALLERGIC SINUSITIS
  6. DICLOFENAC [Concomitant]
     Indication: ARTHRITIS
     Dosage: UNK
     Dates: start: 2010
  7. SULINDAC [Concomitant]
     Indication: ARTHRITIS
     Dosage: 200 MG, BID
     Dates: start: 2000, end: 2010
  8. IPRATROPIUM BROMIDE [Concomitant]
     Indication: RHINITIS
     Dosage: UNK
     Route: 055
     Dates: start: 1990
  9. GABAPENTIN [Concomitant]
     Indication: MIGRAINE
     Dosage: UNK
     Dates: start: 2000
  10. SUMATRIPTAN [Concomitant]
     Indication: MIGRAINE
     Dosage: UNK, PRN
     Dates: start: 2000
  11. NEXIUM [Concomitant]
     Indication: DYSPHAGIA
     Dosage: 40 MG, QD
     Dates: start: 2002
  12. NEXIUM [Concomitant]
     Indication: GASTROOESOPHAGEAL REFLUX DISEASE
  13. PRILOSEC [Concomitant]
     Indication: GASTROOESOPHAGEAL REFLUX DISEASE
     Dosage: 20 MG, BID
     Route: 048
     Dates: start: 1997

REACTIONS (46)
  - Intramedullary rod insertion [Unknown]
  - Femur fracture [Unknown]
  - Cholecystectomy [Unknown]
  - Chest pain [Recovered/Resolved]
  - Dyspnoea [Recovered/Resolved]
  - Skin neoplasm excision [Unknown]
  - Femur fracture [Recovering/Resolving]
  - Dizziness [Recovered/Resolved]
  - Hypertension [Unknown]
  - Skin infection [Unknown]
  - Vitamin D deficiency [Unknown]
  - Chest pain [Unknown]
  - Hypothyroidism [Unknown]
  - Syncope [Unknown]
  - Gait disturbance [Unknown]
  - Bundle branch block right [Unknown]
  - Bundle branch block left [Unknown]
  - Left ventricular hypertrophy [Unknown]
  - Hyponatraemia [Unknown]
  - Hypernatraemia [Unknown]
  - Depression [Unknown]
  - Mitral valve prolapse [Unknown]
  - Hysterectomy [Unknown]
  - Tonsillectomy [Unknown]
  - Muscular weakness [Unknown]
  - Bone disorder [Unknown]
  - Calcinosis [Unknown]
  - Osteoarthritis [Unknown]
  - Tendonitis [Unknown]
  - Osteoarthritis [Unknown]
  - Palpitations [Unknown]
  - Cough [Unknown]
  - Vaginal infection [Unknown]
  - Anxiety [Unknown]
  - Syncope [Unknown]
  - Incontinence [Unknown]
  - Eczema [Unknown]
  - Venous insufficiency [Unknown]
  - Oesophageal dilatation [Unknown]
  - Dyspepsia [Unknown]
  - Headache [Unknown]
  - Oedema peripheral [Unknown]
  - Neck pain [Unknown]
  - Back pain [Unknown]
  - Pain in extremity [Unknown]
  - Myalgia [Unknown]
